FAERS Safety Report 4517736-4 (Version None)
Quarter: 2004Q4

REPORT INFORMATION
  Report Type: 
  Country: None (occurrence: None)
  Receive Date: 20041201
  Receipt Date: 20041201
  Transmission Date: 20050328
  Serious: Yes (Life-Threatening)
  Sender: FDA-Public Use
  Company Number: None

PATIENT
  Sex: Male
  Weight: 250 kg

DRUGS (1)
  1. VIOXX [Suspect]

REACTIONS (1)
  - MYOCARDIAL INFARCTION [None]
